FAERS Safety Report 15953840 (Version 1)
Quarter: 2019Q1

REPORT INFORMATION
  Report Type: Spontaneous
  Country: CA (occurrence: CA)
  Receive Date: 20190213
  Receipt Date: 20190213
  Transmission Date: 20190417
  Serious: Yes (Life-Threatening, Hospitalization)
  Sender: FDA-Public Use
  Company Number: CA-009507513-1902CAN002395

PATIENT
  Age: 82 Year
  Sex: Male
  Weight: 90 kg

DRUGS (6)
  1. BISOPROLOL [Concomitant]
     Active Substance: BISOPROLOL
  2. AMIODARONE [Concomitant]
     Active Substance: AMIODARONE
  3. LASIX [Concomitant]
     Active Substance: FUROSEMIDE
  4. MYLAN NITRO [Concomitant]
     Active Substance: NITROGLYCERIN
     Dosage: PATCH 2.0
  5. MAVIK [Concomitant]
     Active Substance: TRANDOLAPRIL
  6. FINASTERIDE. [Suspect]
     Active Substance: FINASTERIDE
     Indication: PROSTATOMEGALY
     Dosage: 5 MILLIGRAM, QD (1 EVERY 1 DAY)
     Route: 048

REACTIONS (2)
  - Mastectomy [Recovering/Resolving]
  - Breast cancer male [Recovering/Resolving]
